FAERS Safety Report 5766154-X (Version None)
Quarter: 2008Q2

REPORT INFORMATION
  Report Type: 
  Country: None (occurrence: None)
  Receive Date: 20080605
  Receipt Date: 20080529
  Transmission Date: 20081010
  Serious: Yes (Hospitalization, Disabling)
  Sender: FDA-Public Use
  Company Number: 2008SP007553

PATIENT
  Age: 61 Year
  Sex: Male
  Weight: 89 kg

DRUGS (2)
  1. TEMODAL [Suspect]
     Indication: GLIOBLASTOMA
     Dosage: 75 MG/M2; PO
     Route: 048
     Dates: start: 20050816, end: 20050906
  2. CAELYN (PEGYLATED LIPOSOMAL DOXORUBICIN HCL) (DOXORUBICIN HYDROCHLORID [Suspect]
     Indication: GLIOBLASTOMA
     Dosage: 20 MG/M2; IV
     Route: 042
     Dates: start: 20050808, end: 20050808

REACTIONS (6)
  - ABSCESS [None]
  - DIABETES MELLITUS INADEQUATE CONTROL [None]
  - HAEMATOMA [None]
  - HAEMOGLOBIN DECREASED [None]
  - PROCEDURAL COMPLICATION [None]
  - SCAR [None]
